FAERS Safety Report 21266431 (Version 1)
Quarter: 2022Q3

REPORT INFORMATION
  Report Type: Spontaneous
  Country: US (occurrence: None)
  Receive Date: 20220829
  Receipt Date: 20220829
  Transmission Date: 20221026
  Serious: Yes (Hospitalization)
  Sender: FDA-Public Use
  Company Number: None

PATIENT
  Sex: 0

DRUGS (1)
  1. ERIVEDGE [Suspect]
     Active Substance: VISMODEGIB
     Dosage: FREQUENCY : DAILY;?
     Route: 048
     Dates: start: 20220415, end: 20220630

REACTIONS (2)
  - Hepatitis [None]
  - Drug-induced liver injury [None]

NARRATIVE: CASE EVENT DATE: 20220630
